FAERS Safety Report 9202528 (Version 2)
Quarter: 2013Q4

REPORT INFORMATION
  Report Type: Spontaneous
  Country: US (occurrence: US)
  Receive Date: 20130401
  Receipt Date: 20131122
  Transmission Date: 20140711
  Serious: Yes (Hospitalization, Other)
  Sender: FDA-Public Use
  Company Number: US-BAYER-2013-038802

PATIENT
  Sex: Female

DRUGS (6)
  1. YAZ [Suspect]
     Indication: ORAL CONTRACEPTION
     Route: 048
  2. YASMIN [Suspect]
     Indication: ORAL CONTRACEPTION
     Route: 048
  3. OCELLA [Suspect]
     Indication: ORAL CONTRACEPTION
     Route: 048
  4. PROTONIX [Concomitant]
     Dosage: 40 MG, BID
  5. REGLAN [Concomitant]
     Dosage: 5 MG, TID
  6. CARAFATE [Concomitant]
     Dosage: 1 G, QID

REACTIONS (5)
  - Cholecystitis chronic [None]
  - Gallbladder injury [None]
  - Injury [None]
  - Pain [None]
  - Pain [None]
